FAERS Safety Report 8212748-1 (Version None)
Quarter: 2012Q1

REPORT INFORMATION
  Report Type: 
  Country: None (occurrence: None)
  Receive Date: 20120315
  Receipt Date: 20120312
  Transmission Date: 20120608
  Serious: Yes (Hospitalization, Disabling, Other)
  Sender: FDA-Public Use
  Company Number: US-MERCK-1103USA00978

PATIENT
  Age: 53 Year
  Sex: Female

DRUGS (8)
  1. FOSAMAX PLUS D [Suspect]
     Indication: OSTEOPOROSIS
     Route: 048
     Dates: start: 20070101, end: 20081001
  2. CALCIUM (UNSPECIFIED) [Concomitant]
     Indication: OSTEOPOROSIS
     Route: 065
     Dates: start: 20030101
  3. CORTICOSTEROIDS (UNSPECIFIED) [Concomitant]
     Route: 065
     Dates: start: 19960101, end: 20060101
  4. HORMONES (UNSPECIFIED) [Concomitant]
     Route: 065
     Dates: start: 19860101
  5. ALENDRONATE SODIUM [Suspect]
     Route: 048
     Dates: start: 20080101
  6. VITAMIN D (UNSPECIFIED) [Concomitant]
     Indication: OSTEOPOROSIS
     Route: 065
     Dates: start: 20100101
  7. FOSAMAX [Suspect]
     Indication: OSTEOPOROSIS
     Route: 048
     Dates: start: 20000101, end: 20070901
  8. FOSAMAX [Suspect]
     Route: 048
     Dates: start: 20080101, end: 20091101

REACTIONS (13)
  - OSTEOPOROSIS [None]
  - BLOOD CHOLESTEROL INCREASED [None]
  - GINGIVAL DISORDER [None]
  - FEMUR FRACTURE [None]
  - LOW TURNOVER OSTEOPATHY [None]
  - TOOTH DISORDER [None]
  - VITAMIN D DEFICIENCY [None]
  - RAYNAUD'S PHENOMENON [None]
  - NEUROPATHY PERIPHERAL [None]
  - LOOSE TOOTH [None]
  - FRACTURE NONUNION [None]
  - FRACTURE [None]
  - STRESS FRACTURE [None]
